FAERS Safety Report 9822847 (Version 2)
Quarter: 2014Q1

REPORT INFORMATION
  Report Type: Spontaneous
  Country: US (occurrence: US)
  Receive Date: 20140116
  Receipt Date: 20140116
  Transmission Date: 20141002
  Serious: Yes (Hospitalization)
  Sender: FDA-Public Use
  Company Number: US-B.I. PHARMACEUTICALS,INC./RIDGEFIELD-2013-BI-22478BP

PATIENT
  Sex: Male
  Weight: 126.1 kg

DRUGS (8)
  1. PRADAXA [Suspect]
     Indication: ATRIAL FIBRILLATION
     Dosage: 300 MG
     Dates: start: 20110526, end: 20120602
  2. AMLODIPINE [Concomitant]
     Dosage: 5 MG
  3. SINGULAIR [Concomitant]
  4. PREDNISONE [Concomitant]
  5. VICODIN [Concomitant]
  6. TOVIAZ [Concomitant]
  7. ARICEPT [Concomitant]
  8. DOXYCYCLINE [Concomitant]

REACTIONS (7)
  - Renal haemorrhage [Unknown]
  - Renal failure acute [Unknown]
  - Haematuria [Unknown]
  - Haemorrhagic anaemia [Unknown]
  - Urinary retention [Unknown]
  - Urinary tract infection [Unknown]
  - Deep vein thrombosis [Unknown]
